FAERS Safety Report 4326742-4 (Version None)
Quarter: 2004Q1

REPORT INFORMATION
  Report Type: 
  Country: None (occurrence: None)
  Receive Date: 20040322
  Receipt Date: 20031209
  Transmission Date: 20041129
  Serious: No
  Sender: FDA-Public Use
  Company Number: PHEH2003US11326

PATIENT
  Age: 26 Year
  Sex: Female
  Weight: 65.8 kg

DRUGS (1)
  1. ZOMETA [Suspect]
     Dates: start: 20031209, end: 20031209

REACTIONS (1)
  - ACCIDENTAL EXPOSURE [None]
